FAERS Safety Report 25738788 (Version 2)
Quarter: 2025Q3

REPORT INFORMATION
  Report Type: Report from Study
  Country: US (occurrence: US)
  Receive Date: 20250829
  Receipt Date: 20250904
  Transmission Date: 20251020
  Serious: Yes (Hospitalization, Other)
  Sender: ACADIA PHARMACEUTICALS
  Company Number: US-ACADIA PHARMACEUTICALS INC.-ACA-2025-TRF-009590

PATIENT
  Sex: Female
  Weight: 15 kg

DRUGS (16)
  1. DAYBUE [Suspect]
     Active Substance: TROFINETIDE
     Indication: Rett syndrome
     Dosage: 30 MILLILITER, BID
     Route: 048
     Dates: start: 202305
  2. NAYZILAM [Concomitant]
     Active Substance: MIDAZOLAM
  3. KLONOPIN [Concomitant]
     Active Substance: CLONAZEPAM
  4. VIMPAT [Concomitant]
     Active Substance: LACOSAMIDE
  5. ALBUTEROL SULFATE [Concomitant]
     Active Substance: ALBUTEROL SULFATE
  6. EPIDIOLEX [Concomitant]
     Active Substance: CANNABIDIOL
  7. ONFI [Concomitant]
     Active Substance: CLOBAZAM
  8. VALTOCO [Concomitant]
     Active Substance: DIAZEPAM
  9. ZOFRAN [Concomitant]
     Active Substance: ONDANSETRON HYDROCHLORIDE
  10. VALPROATE SODIUM [Concomitant]
     Active Substance: VALPROATE SODIUM
  11. CLONIDINE [Concomitant]
     Active Substance: CLONIDINE
  12. ASMANEX HFA [Concomitant]
     Active Substance: MOMETASONE FUROATE
  13. MOMETASONE FUROATE [Concomitant]
     Active Substance: MOMETASONE FUROATE
  14. FAMOTIDINE [Concomitant]
     Active Substance: FAMOTIDINE
  15. ZYRTEC [Concomitant]
     Active Substance: CETIRIZINE HYDROCHLORIDE
  16. SINGULAIR [Concomitant]
     Active Substance: MONTELUKAST SODIUM

REACTIONS (3)
  - Pneumonia [Recovering/Resolving]
  - Seizure [Recovering/Resolving]
  - Nasopharyngitis [Recovering/Resolving]
